FAERS Safety Report 5530158-2 (Version None)
Quarter: 2007Q4

REPORT INFORMATION
  Report Type: 
  Country: None (occurrence: None)
  Receive Date: 20071128
  Receipt Date: 20071128
  Transmission Date: 20080405
  Serious: Yes (Death)
  Sender: FDA-Public Use
  Company Number: None

PATIENT
  Age: 69 Year
  Sex: Male
  Weight: 70 kg

DRUGS (2)
  1. REMICADE [Suspect]
     Indication: RHEUMATOID ARTHRITIS
     Dosage: ? Q2 WEEKS IV 1 BELIEVE 1-2 YEARS
     Route: 042
  2. CYTOXAN [Suspect]
     Indication: RHEUMATOID VASCULITIS
     Dosage: DAILY PO
     Route: 048

REACTIONS (3)
  - HEMIPARESIS [None]
  - PROGRESSIVE MULTIFOCAL LEUKOENCEPHALOPATHY [None]
  - RESPIRATORY FAILURE [None]
